FAERS Safety Report 5220520-X (Version None)
Quarter: 2007Q1

REPORT INFORMATION
  Report Type: 
  Country: None (occurrence: None)
  Receive Date: 20070125
  Receipt Date: 20070125
  Transmission Date: 20070707
  Serious: Yes (Hospitalization)
  Sender: FDA-Public Use
  Company Number: None

PATIENT
  Sex: Male
  Weight: 93.441 kg

DRUGS (7)
  1. LITHIUM CARBONATE [Suspect]
     Indication: BIPOLAR DISORDER
     Dosage: 300MG PO TID PRIOR TO ADMISSION
     Route: 048
  2. NEXIUM [Concomitant]
  3. LACTULOSE [Concomitant]
  4. CLONAZEPAM [Concomitant]
  5. SYNTHROID [Concomitant]
  6. SEROQUEL [Concomitant]
  7. CHOLCHICINE [Concomitant]

REACTIONS (4)
  - HEPATIC ENCEPHALOPATHY [None]
  - NEPHROGENIC DIABETES INSIPIDUS [None]
  - RENAL FAILURE ACUTE [None]
  - THERAPEUTIC AGENT TOXICITY [None]
